FAERS Safety Report 9688772 (Version 1)
Quarter: 2013Q4

REPORT INFORMATION
  Report Type: Spontaneous
  Country: US (occurrence: US)
  Receive Date: 20131114
  Receipt Date: 20131114
  Transmission Date: 20140711
  Serious: No
  Sender: FDA-Public Use
  Company Number: US-BAYER-2013-139077

PATIENT
  Age: 73 Year
  Sex: Male
  Weight: 95 kg

DRUGS (14)
  1. ALEVE CAPLET [Suspect]
     Indication: BACK PAIN
     Dosage: 3 DF, PRN
     Route: 048
     Dates: start: 2013
  2. ALEVE CAPLET [Suspect]
     Indication: PAIN
  3. ISOSORB [Concomitant]
     Dosage: 10 MG, UNK
  4. FOLIC ACID [Concomitant]
  5. LEVOTHYROXINE [Concomitant]
     Dosage: 100 ?G, UNK
  6. LORATADINE [Concomitant]
  7. SERTRALINE [Concomitant]
     Dosage: 100 MG, UNK
  8. NEXIUM [Concomitant]
  9. CRESTOR [Concomitant]
  10. IRON [Concomitant]
  11. AMLODIPINE [Concomitant]
  12. GABAPENTIN [Concomitant]
     Dosage: 100 MG, UNK
  13. FUROSEMIDE [Concomitant]
  14. LEVOTHYROXINE [Concomitant]
     Dosage: 88 ?G, UNK

REACTIONS (2)
  - Extra dose administered [None]
  - Drug ineffective [None]
